FAERS Safety Report 6962111-6 (Version None)
Quarter: 2010Q3

REPORT INFORMATION
  Report Type: 
  Country: None (occurrence: None)
  Receive Date: 20100902
  Receipt Date: 20100830
  Transmission Date: 20110219
  Serious: Yes (Other)
  Sender: FDA-Public Use
  Company Number: JP-EISAI INC.-E2020-07266-SPO-JP

PATIENT
  Age: 84 Year
  Sex: Female

DRUGS (3)
  1. ARICEPT [Suspect]
     Indication: PRODUCT USED FOR UNKNOWN INDICATION
     Route: 048
  2. ARICEPT [Suspect]
     Route: 048
     Dates: start: 20100802
  3. PLETAL [Concomitant]
     Dates: start: 20100701

REACTIONS (1)
  - ELECTROCARDIOGRAM QT PROLONGED [None]
